FAERS Safety Report 8901875 (Version 1)
Quarter: 2012Q4

REPORT INFORMATION
  Report Type: Spontaneous
  Country: US (occurrence: None)
  Receive Date: 20121109
  Receipt Date: 20121109
  Transmission Date: 20130627
  Serious: Yes (Other)
  Sender: FDA-Public Use
  Company Number: None

PATIENT
  Sex: Female
  Weight: 55.79 kg

DRUGS (9)
  1. WELLBUTRIN XL [Suspect]
     Indication: DEPRESSION
     Route: 048
     Dates: start: 20120101, end: 20120903
  2. TILIAFE [Concomitant]
  3. FLONASE [Concomitant]
  4. REGLAN [Concomitant]
  5. CLONAZEPAM [Concomitant]
  6. HYDROCODONE [Concomitant]
  7. DURAGESIC [Concomitant]
  8. BACLOFEN [Concomitant]
  9. PHRENILIN FORTE [Concomitant]

REACTIONS (4)
  - Headache [None]
  - Insomnia [None]
  - Nausea [None]
  - Dizziness [None]
